FAERS Safety Report 22224338 (Version 3)
Quarter: 2023Q2

REPORT INFORMATION
  Report Type: Spontaneous
  Country: JP (occurrence: JP)
  Receive Date: 20230418
  Receipt Date: 20230511
  Transmission Date: 20230721
  Serious: Yes (Death, Hospitalization)
  Sender: FDA-Public Use
  Company Number: JP-PFIZER INC-PV202300069653

PATIENT
  Age: 64 Year
  Sex: Female
  Weight: 57.5 kg

DRUGS (7)
  1. VIZIMPRO [Suspect]
     Active Substance: DACOMITINIB
     Dosage: 15 MG, DAILY
     Dates: start: 20230120, end: 20230328
  2. LANSOPRAZOLE [Concomitant]
     Active Substance: LANSOPRAZOLE
     Indication: Gastritis
     Dosage: 15 MG, DAILY
     Route: 048
     Dates: end: 20230328
  3. AMITIZA [Concomitant]
     Active Substance: LUBIPROSTONE
     Indication: Constipation
     Dosage: 48 UG, DAILY
     Dates: end: 20230328
  4. MAGNESIUM OXIDE [Concomitant]
     Active Substance: MAGNESIUM OXIDE
     Indication: Constipation
     Dosage: 990 MG, DAILY
     Route: 048
     Dates: end: 20230328
  5. TENELIGLIPTIN [Concomitant]
     Active Substance: TENELIGLIPTIN
     Indication: Diabetes mellitus
     Dosage: 40 MG, DAILY
     Route: 048
     Dates: end: 20230328
  6. GLIMEPIRIDE [Concomitant]
     Active Substance: GLIMEPIRIDE
     Indication: Diabetes mellitus
     Dosage: 0.5 MG, DAILY
     Route: 048
     Dates: end: 20230328
  7. MS CONTIN [Concomitant]
     Active Substance: MORPHINE SULFATE
     Indication: Cancer pain
     Dosage: 20 MG, DAILY
     Route: 048
     Dates: end: 20230401

REACTIONS (2)
  - Neoplasm progression [Fatal]
  - Decreased appetite [Fatal]

NARRATIVE: CASE EVENT DATE: 20230320
